FAERS Safety Report 25338606 (Version 1)
Quarter: 2025Q2

REPORT INFORMATION
  Report Type: Spontaneous
  Country: US (occurrence: US)
  Receive Date: 20250520
  Receipt Date: 20250520
  Transmission Date: 20250716
  Serious: No
  Sender: SANOFI AVENTIS
  Company Number: US-SANOFI-02524809

PATIENT
  Age: 78 Year
  Sex: Female

DRUGS (1)
  1. LANTUS SOLOSTAR [Suspect]
     Active Substance: INSULIN GLARGINE
     Indication: Type 2 diabetes mellitus
     Dosage: 45 IU, QD (UNLESS HER BLOOD SUGAR GETS TOO HIGH, IN WHICH CASE SHE SOMETIMES GIVES HERSELF HALF A DO
     Route: 058
     Dates: start: 2016

REACTIONS (1)
  - Off label use [Unknown]
